FAERS Safety Report 11788875 (Version 1)
Quarter: 2015Q4

REPORT INFORMATION
  Report Type: Spontaneous
  Country: DK (occurrence: DK)
  Receive Date: 20151201
  Receipt Date: 20151201
  Transmission Date: 20160305
  Serious: Yes (Hospitalization)
  Sender: FDA-Public Use
  Company Number: DK-ACTAVIS-2015-17263

PATIENT
  Age: 43 Year
  Sex: Female

DRUGS (4)
  1. GABAPENTIN (UNKNOWN) [Suspect]
     Active Substance: GABAPENTIN
     Indication: PAIN
     Dosage: UNK
     Route: 065
  2. KETOGAN                            /00129101/ [Concomitant]
     Active Substance: KETOBEMIDONE HYDROCHLORIDE
     Indication: PAIN
     Dosage: UNK
     Route: 065
  3. OXYCONTIN [Suspect]
     Active Substance: OXYCODONE HYDROCHLORIDE
     Indication: PAIN
     Dosage: UNK
     Route: 065
  4. SAROTEN [Suspect]
     Active Substance: AMITRIPTYLINE
     Indication: PAIN
     Dosage: UNK
     Route: 065

REACTIONS (9)
  - Loss of consciousness [Unknown]
  - Anxiety [Unknown]
  - Tooth disorder [Unknown]
  - Overdose [Unknown]
  - Cognitive disorder [Unknown]
  - Memory impairment [Unknown]
  - Dysphemia [Unknown]
  - Tremor [Unknown]
  - Fall [Unknown]

NARRATIVE: CASE EVENT DATE: 201107
